FAERS Safety Report 7487788-0 (Version None)
Quarter: 2011Q2

REPORT INFORMATION
  Report Type: 
  Country: None (occurrence: None)
  Receive Date: 20110518
  Receipt Date: 20110509
  Transmission Date: 20111010
  Serious: Yes (Hospitalization, Other)
  Sender: FDA-Public Use
  Company Number: PHHY2008BR22126

PATIENT
  Age: 88 Year
  Sex: Female

DRUGS (4)
  1. EXELON [Suspect]
     Dosage: 27MG/15CM2
     Route: 062
  2. EXELON [Suspect]
     Dosage: 9.5 MG, UNK
     Route: 062
     Dates: start: 20080101
  3. EXELON [Suspect]
     Dosage: 9.5 MG, UNK
     Route: 062
  4. EXELON [Suspect]
     Indication: DEMENTIA ALZHEIMER'S TYPE
     Dosage: 4.6 MG, UNK
     Route: 062
     Dates: start: 20080506

REACTIONS (7)
  - DEPRESSED MOOD [None]
  - PAIN [None]
  - TEARFULNESS [None]
  - DRUG INEFFECTIVE [None]
  - URINARY TRACT INFECTION [None]
  - PRODUCT ADHESION ISSUE [None]
  - DEPRESSION [None]
